FAERS Safety Report 7366246-8 (Version None)
Quarter: 2011Q1

REPORT INFORMATION
  Report Type: 
  Country: None (occurrence: None)
  Receive Date: 20110322
  Receipt Date: 20101221
  Transmission Date: 20110831
  Serious: Yes (Life-Threatening)
  Sender: FDA-Public Use
  Company Number: JP-BAYER-201010356BYL

PATIENT
  Age: 68 Year
  Sex: Male

DRUGS (9)
  1. NOVORAPID [Concomitant]
     Indication: DIABETES MELLITUS
     Dosage: 14 U (DAILY DOSE), , SUBCUTANEOUS
     Route: 058
  2. MICARDIS [Concomitant]
     Indication: HYPERTENSION
     Dosage: 80 MG (DAILY DOSE), , ORAL
     Route: 048
  3. NEXAVAR [Suspect]
     Indication: HEPATIC NEOPLASM MALIGNANT
     Route: 048
     Dates: start: 20090910, end: 20090912
  4. NEXAVAR [Suspect]
     Dosage: 400 MG (DAILY DOSE), , ORAL
     Route: 048
     Dates: start: 20090912, end: 20091225
  5. NEXAVAR [Suspect]
     Dosage: 200 MG (DAILY DOSE), , ORAL
     Route: 048
     Dates: start: 20091225, end: 20100122
  6. ALDACTONE [Concomitant]
     Indication: OEDEMA
     Dosage: 25 MG (DAILY DOSE), , ORAL
     Route: 048
  7. ADALAT CC [Concomitant]
     Indication: HYPERTENSION
     Dosage: 40 MG (DAILY DOSE), , ORAL
     Route: 048
  8. FLUITRAN [Concomitant]
     Indication: OEDEMA
     Dosage: 1 MG (DAILY DOSE), , ORAL
     Route: 048
  9. NELBIS [Concomitant]
     Dosage: 500 MG (DAILY DOSE), , ORAL
     Route: 048

REACTIONS (3)
  - JAUNDICE [None]
  - BLOOD BILIRUBIN INCREASED [None]
  - PALMAR-PLANTAR ERYTHRODYSAESTHESIA SYNDROME [None]
